FAERS Safety Report 21262807 (Version 1)
Quarter: 2022Q3

REPORT INFORMATION
  Report Type: Spontaneous
  Country: CA (occurrence: CA)
  Receive Date: 20220828
  Receipt Date: 20220828
  Transmission Date: 20221027
  Serious: Yes (Other)
  Sender: FDA-Public Use
  Company Number: None

PATIENT
  Age: 14 Year
  Sex: Male

DRUGS (9)
  1. MYCOPHENOLATE MOFETIL [Suspect]
     Active Substance: MYCOPHENOLATE MOFETIL
     Indication: Prophylaxis against transplant rejection
     Route: 065
  2. MENINGOCOCCAL POLYSACCHARIDE VACCINE A NOS [Suspect]
     Active Substance: MENINGOCOCCAL POLYSACCHARIDE VACCINE A\NEISSERIA MENINGITIDIS GROUP A CAPSULAR POLYSACCHARIDE ANTIGE
     Indication: Infection prophylaxis
     Route: 065
  3. THYMOCYTE IMMUNE GLOBULIN NOS [Suspect]
     Active Substance: THYMOCYTE IMMUNE GLOBULIN NOS
     Indication: Prophylaxis against transplant rejection
     Route: 065
  4. ECULIZUMAB [Suspect]
     Active Substance: ECULIZUMAB
     Indication: Thrombotic microangiopathy
     Dosage: 2 EVERY 1 WEEKS
     Route: 065
  5. METHYLPREDNISOLONE [Suspect]
     Active Substance: METHYLPREDNISOLONE
     Indication: Prophylaxis against transplant rejection
     Route: 065
  6. SIROLIMUS [Suspect]
     Active Substance: SIROLIMUS
     Indication: Prophylaxis against transplant rejection
     Route: 065
  7. VALGANCICLOVIR HYDROCHLORIDE [Suspect]
     Active Substance: VALGANCICLOVIR HYDROCHLORIDE
     Indication: Cytomegalovirus oesophagitis
     Route: 065
  8. PENICILLIN V [Concomitant]
     Active Substance: PENICILLIN V
     Indication: Infection prophylaxis
     Route: 065
  9. ECULIZUMAB [Suspect]
     Active Substance: ECULIZUMAB
     Indication: Thrombotic microangiopathy
     Route: 065

REACTIONS (4)
  - Cytomegalovirus oesophagitis [Unknown]
  - Disseminated varicella zoster virus infection [Unknown]
  - Osteomyelitis chronic [Unknown]
  - Staphylococcal mediastinitis [Unknown]
